FAERS Safety Report 24422184 (Version 4)
Quarter: 2024Q4

REPORT INFORMATION
  Report Type: Spontaneous
  Country: US (occurrence: US)
  Receive Date: 20241010
  Receipt Date: 20241126
  Transmission Date: 20250115
  Serious: Yes (Other)
  Sender: ORGANON
  Company Number: US-ORGANON-O2410USA000434

PATIENT
  Age: 17 Year
  Sex: Female
  Weight: 156.01 kg

DRUGS (1)
  1. NEXPLANON [Suspect]
     Active Substance: ETONOGESTREL
     Indication: Contraception
     Dosage: 1 IMPLANT (68 MG) EVERY 3 YEARS, IN LEFT UPPER ARM
     Route: 059
     Dates: start: 20220928

REACTIONS (5)
  - Device expulsion [Not Recovered/Not Resolved]
  - Implant site abscess [Recovered/Resolved]
  - Complication associated with device [Not Recovered/Not Resolved]
  - Device placement issue [Not Recovered/Not Resolved]
  - Product dose omission issue [Unknown]

NARRATIVE: CASE EVENT DATE: 20220928
